FAERS Safety Report 15053308 (Version 1)
Quarter: 2018Q2

REPORT INFORMATION
  Report Type: Report from Study
  Country: None (occurrence: TR)
  Receive Date: 20180622
  Receipt Date: 20180622
  Transmission Date: 20180711
  Serious: Yes (Hospitalization)
  Sender: FDA-Public Use
  Company Number: TR-ABBVIE-18K-161-2397261-00

PATIENT
  Age: 62 Year
  Sex: Female
  Weight: 125 kg

DRUGS (1)
  1. DUODOPA [Suspect]
     Active Substance: CARBIDOPA\LEVODOPA
     Indication: PARKINSON^S DISEASE
     Dosage: MORNING DOSE: 4.50 ML??CONTINUOUS DOSE: 4.50 ML??EXTRA DOSE: 1.50 ML
     Route: 050
     Dates: start: 20170724

REACTIONS (3)
  - Pulmonary embolism [Unknown]
  - Hallucination [Unknown]
  - Dyspnoea [Unknown]

NARRATIVE: CASE EVENT DATE: 20180621
